FAERS Safety Report 5832923-0 (Version None)
Quarter: 2008Q3

REPORT INFORMATION
  Report Type: 
  Country: None (occurrence: None)
  Receive Date: 20080804
  Receipt Date: 20080729
  Transmission Date: 20090109
  Serious: Yes (Hospitalization)
  Sender: FDA-Public Use
  Company Number: JP-BOEHRINGER INGELHEIM GMBH, GERMANY-2008-BP-10753NB

PATIENT
  Age: 58 Year
  Sex: Female

DRUGS (1)
  1. BI-SIFROL TABLETS [Suspect]
     Route: 048

REACTIONS (2)
  - DYSKINESIA [None]
  - INAPPROPRIATE ANTIDIURETIC HORMONE SECRETION [None]
